FAERS Safety Report 9084583 (Version 1)
Quarter: 2013Q1

REPORT INFORMATION
  Report Type: Report from Study
  Country: US (occurrence: US)
  Receive Date: 20130130
  Receipt Date: 20130130
  Transmission Date: 20140127
  Serious: Yes (Other)
  Sender: FDA-Public Use
  Company Number: US-AMGEN-USANI2013004701

PATIENT
  Age: 8 Month
  Sex: 0

DRUGS (15)
  1. ETANERCEPT [Suspect]
     Dosage: 50 MG, Q2WK
     Route: 064
     Dates: start: 20080824, end: 20090415
  2. PRENATAL VITAMINS [Concomitant]
     Dosage: UNK UNK, QD
     Route: 064
     Dates: start: 20080824, end: 20090507
  3. FISH OIL [Concomitant]
     Dosage: UNK UNK, QD
     Route: 064
     Dates: start: 20080824, end: 20090308
  4. FOLIC ACID [Concomitant]
     Dosage: 1600 MUG, QD
     Route: 064
     Dates: start: 20080914, end: 20090507
  5. CALCIUM [Concomitant]
     Dosage: 1500 MG, QD
     Route: 064
     Dates: start: 20080914, end: 20090430
  6. LOVENOX [Concomitant]
     Dosage: UNK UNK, QD
     Route: 064
     Dates: start: 20080916, end: 20090424
  7. IRON [Concomitant]
     Dosage: 1095 MG, QD
     Route: 064
     Dates: start: 20080824, end: 20090507
  8. GINGER [Concomitant]
     Dosage: UNK UNK, QD
     Route: 064
     Dates: start: 20081102, end: 20090308
  9. TUMS [Concomitant]
     Dosage: UNK UNK, QD
     Route: 064
     Dates: start: 20081214, end: 20090507
  10. SUDAFED [Concomitant]
     Dosage: UNK
     Route: 064
     Dates: start: 20081201, end: 20081231
  11. BENADRYL [Concomitant]
     Dosage: UNK UNK, QD
     Route: 064
     Dates: start: 20081225, end: 20081225
  12. MORPHINE [Concomitant]
     Dosage: UNK UNK, QD
     Route: 064
     Dates: start: 20081213, end: 20081213
  13. INSULIN [Concomitant]
     Dosage: UNK UNK, QD
     Route: 064
     Dates: start: 20090211, end: 20090301
  14. Z-PAK [Concomitant]
     Dosage: UNK
     Route: 064
     Dates: start: 20090201, end: 20090228
  15. HEPARIN [Concomitant]
     Dosage: 7500 IU, QD
     Route: 064
     Dates: start: 20090424, end: 20090507

REACTIONS (1)
  - Hypotonia [Recovered/Resolved]
